FAERS Safety Report 8789573 (Version 2)
Quarter: 2012Q4

REPORT INFORMATION
  Report Type: Spontaneous
  Country: US (occurrence: None)
  Receive Date: 20120905
  Receipt Date: 20121005
  Transmission Date: 20130627
  Serious: Yes (Other)
  Sender: FDA-Public Use
  Company Number: 1208-459

PATIENT
  Age: 83 Year
  Sex: Female

DRUGS (1)
  1. EYLEA [Suspect]
     Indication: EXUDATIVE SENILE MACULAR DEGENERATION OF RETINA
     Dosage: 06/08/2012 - 07/26/2012 Intravitreal
     Dates: start: 20120608, end: 20120726

REACTIONS (2)
  - Retinal haemorrhage [None]
  - Blindness [None]
